FAERS Safety Report 6935776-2 (Version None)
Quarter: 2010Q3

REPORT INFORMATION
  Report Type: 
  Country: None (occurrence: None)
  Receive Date: 20100817
  Receipt Date: 20100812
  Transmission Date: 20110219
  Serious: Yes (Hospitalization)
  Sender: FDA-Public Use
  Company Number: WAES 1007DEU00088

PATIENT
  Age: 59 Year
  Sex: Male

DRUGS (8)
  1. CAP VORINOSTAT [Suspect]
     Indication: SARCOMA METASTATIC
     Dosage: 400 MG DAILY
     Route: 048
     Dates: start: 20100712
  2. AMPHOTERICIN B [Concomitant]
  3. ENOXAPARIN SODIUM [Concomitant]
  4. HYDROCHLOROTHIAZIDE [Concomitant]
  5. HYDROMORPHONE HCL [Concomitant]
  6. PANTOPRAZOLE SODIUM [Concomitant]
  7. PREGABALIN [Concomitant]
  8. SULFAMETHOXAZOLE AND TRIMETHOPRIM [Concomitant]

REACTIONS (4)
  - HAEMOGLOBIN DECREASED [None]
  - HAEMOPTYSIS [None]
  - PNEUMONIA [None]
  - PNEUMOTHORAX [None]
